FAERS Safety Report 13961181 (Version 1)
Quarter: 2017Q3

REPORT INFORMATION
  Report Type: Report from Study
  Country: GB (occurrence: GB)
  Receive Date: 20170912
  Receipt Date: 20170912
  Transmission Date: 20171128
  Serious: Yes (Death)
  Sender: FDA-Public Use
  Company Number: GB-PFIZER INC-2017394821

PATIENT

DRUGS (2)
  1. OXALIPLATIN. [Suspect]
     Active Substance: OXALIPLATIN
     Indication: OESOPHAGEAL ADENOCARCINOMA
     Dosage: 130 MG/M2, CYCLIC (TWO 3-WEEKLY CYCLES)
     Route: 042
  2. CAPECITABINE. [Suspect]
     Active Substance: CAPECITABINE
     Indication: OESOPHAGEAL ADENOCARCINOMA
     Dosage: 625 MG/M2, 2X/DAY (FROM DAY 1 TO DAY 21)
     Route: 048

REACTIONS (2)
  - Intestinal ischaemia [Fatal]
  - Superior mesenteric artery syndrome [Fatal]
